FAERS Safety Report 24977075 (Version 3)
Quarter: 2025Q3

REPORT INFORMATION
  Report Type: Spontaneous
  Country: US (occurrence: US)
  Receive Date: 20250217
  Receipt Date: 20250804
  Transmission Date: 20251020
  Serious: Yes (Other)
  Sender: SANOFI AVENTIS
  Company Number: US-SA-2025SA045306

PATIENT
  Age: 31 Year
  Sex: Female

DRUGS (8)
  1. DUPIXENT [Suspect]
     Active Substance: DUPILUMAB
     Indication: Nasal polyps
     Dosage: 300 MG, QOW
     Route: 058
     Dates: start: 202501
  2. PREDNISONE [Concomitant]
     Active Substance: PREDNISONE
     Dosage: UNK, QD
  3. ALBUTEROL [Concomitant]
     Active Substance: ALBUTEROL
  4. ADVAIR HFA [Concomitant]
     Active Substance: FLUTICASONE PROPIONATE\SALMETEROL XINAFOATE
  5. WIXELA INHUB [Concomitant]
     Active Substance: FLUTICASONE PROPIONATE\SALMETEROL XINAFOATE
     Dosage: 260-50  UG, BID
     Route: 055
  6. BUDESONIDE [Concomitant]
     Active Substance: BUDESONIDE
     Dosage: 1 DF BID
     Route: 055
  7. NASAFLO NETI POT [SODIUM BICARBONATE;SODIUM CHLORIDE] [Concomitant]
     Dosage: UNK UNK, BID
  8. FLONASE ALLERGY RELIEF [Concomitant]
     Active Substance: FLUTICASONE PROPIONATE
     Dosage: 50 UG, QD

REACTIONS (16)
  - Syncope [Recovering/Resolving]
  - Cough [Recovering/Resolving]
  - Heat exhaustion [Recovering/Resolving]
  - Dyspnoea [Recovering/Resolving]
  - Sleep disorder [Recovering/Resolving]
  - Sputum discoloured [Recovering/Resolving]
  - Nasal congestion [Not Recovered/Not Resolved]
  - Condition aggravated [Not Recovered/Not Resolved]
  - Injection site urticaria [Unknown]
  - Wheezing [Not Recovered/Not Resolved]
  - Dizziness [Recovering/Resolving]
  - Injection site rash [Unknown]
  - Sinus operation [Not Recovered/Not Resolved]
  - Condition aggravated [Not Recovered/Not Resolved]
  - Injection site pruritus [Unknown]
  - Injection site pain [Unknown]

NARRATIVE: CASE EVENT DATE: 20250101
